FAERS Safety Report 15556184 (Version 1)
Quarter: 2018Q4

REPORT INFORMATION
  Report Type: Spontaneous
  Country: US (occurrence: US)
  Receive Date: 20181026
  Receipt Date: 20181026
  Transmission Date: 20190205
  Serious: No
  Sender: FDA-Public Use
  Company Number: US-ALLERGAN-1823257US

PATIENT
  Age: 73 Year
  Sex: Female

DRUGS (2)
  1. ALPHAGAN P [Suspect]
     Active Substance: BRIMONIDINE TARTRATE
     Indication: GLAUCOMA
     Dosage: 2 GTT, BID
     Route: 047
     Dates: start: 20180331
  2. ALPHAGAN P [Suspect]
     Active Substance: BRIMONIDINE TARTRATE
     Indication: INTRAOCULAR PRESSURE INCREASED

REACTIONS (8)
  - Product storage error [Unknown]
  - Blood pressure increased [Unknown]
  - Stress [Unknown]
  - Fatigue [Recovered/Resolved]
  - Lip swelling [Unknown]
  - Swelling face [Unknown]
  - Foreign body sensation in eyes [Unknown]
  - Dry mouth [Unknown]
